FAERS Safety Report 23110235 (Version 1)
Quarter: 2023Q4

REPORT INFORMATION
  Report Type: Report from Study
  Country: US (occurrence: US)
  Receive Date: 20231026
  Receipt Date: 20231026
  Transmission Date: 20240109
  Serious: Yes (Other)
  Sender: FDA-Public Use
  Company Number: US-BAYER-2023A147545

PATIENT
  Age: 60 Year
  Sex: Female

DRUGS (1)
  1. STIVARGA [Suspect]
     Active Substance: REGORAFENIB
     Indication: Rectal cancer
     Dosage: 80 MG, DAILY FOR 21 DAYS ON AND 7 DAYS
     Route: 048

REACTIONS (4)
  - Bedridden [Unknown]
  - Fatigue [Unknown]
  - Diarrhoea [Unknown]
  - Off label use [None]
